FAERS Safety Report 4662634-9 (Version None)
Quarter: 2005Q2

REPORT INFORMATION
  Report Type: 
  Country: None (occurrence: None)
  Receive Date: 20050516
  Receipt Date: 20050510
  Transmission Date: 20051028
  Serious: Yes (Hospitalization)
  Sender: FDA-Public Use
  Company Number: CA-BRISTOL-MYERS SQUIBB COMPANY-12965364

PATIENT
  Age: 60 Year
  Sex: Male

DRUGS (1)
  1. TEQUIN [Suspect]
     Indication: BRONCHITIS
     Dosage: DURATION: 4-5 DAYS
     Route: 048
     Dates: start: 20040101, end: 20040101

REACTIONS (2)
  - CONFUSIONAL STATE [None]
  - HYPERGLYCAEMIA [None]
